FAERS Safety Report 5640152-9 (Version None)
Quarter: 2008Q1

REPORT INFORMATION
  Report Type: 
  Country: None (occurrence: None)
  Receive Date: 20080226
  Receipt Date: 20080226
  Transmission Date: 20080703
  Serious: Yes (Other)
  Sender: FDA-Public Use
  Company Number: None

PATIENT
  Age: 10 Year
  Sex: Female
  Weight: 36.2878 kg

DRUGS (2)
  1. PENTASA [Suspect]
     Indication: CROHN'S DISEASE
     Dosage: 2 CAPSULES   3 TIMES A DAY  PO
     Route: 048
     Dates: start: 20060501, end: 20080225
  2. PENTASA [Suspect]

REACTIONS (1)
  - ABDOMINAL PAIN UPPER [None]
